FAERS Safety Report 5246438-4 (Version None)
Quarter: 2007Q1

REPORT INFORMATION
  Report Type: 
  Country: None (occurrence: None)
  Receive Date: 20070222
  Receipt Date: 20070222
  Transmission Date: 20070707
  Serious: Yes (Other)
  Sender: FDA-Public Use
  Company Number: None

PATIENT
  Age: 57 Year
  Sex: Female
  Weight: 70.3075 kg

DRUGS (1)
  1. ULTRAM [Suspect]
     Indication: SURGERY
     Dosage: 2 TABLETS  EVERY 4 HOURS  PO
     Route: 048
     Dates: start: 20070218, end: 20070228

REACTIONS (2)
  - NO THERAPEUTIC RESPONSE [None]
  - PRURITUS GENERALISED [None]
